FAERS Safety Report 23968565 (Version 1)
Quarter: 2024Q2

REPORT INFORMATION
  Report Type: Spontaneous
  Country: US (occurrence: US)
  Receive Date: 20240612
  Receipt Date: 20240612
  Transmission Date: 20240716
  Serious: No
  Sender: FDA-Public Use
  Company Number: US-PharmaLex US Corporation-2158064

PATIENT
  Sex: Male

DRUGS (1)
  1. CYTALUX [Suspect]
     Active Substance: PAFOLACIANINE SODIUM
     Indication: Lung neoplasm malignant
     Route: 042
     Dates: start: 20240606, end: 20240606

REACTIONS (2)
  - Nausea [Unknown]
  - Vomiting [Unknown]
